FAERS Safety Report 10440926 (Version 1)
Quarter: 2014Q3

REPORT INFORMATION
  Report Type: Spontaneous
  Country: US (occurrence: None)
  Receive Date: 20140908
  Receipt Date: 20140908
  Transmission Date: 20150326
  Serious: Yes (Disabling)
  Sender: FDA-Public Use
  Company Number: None

PATIENT
  Age: 56 Year
  Sex: Female
  Weight: 76 kg

DRUGS (1)
  1. REVLIMID [Suspect]
     Active Substance: LENALIDOMIDE

REACTIONS (10)
  - Tremor [None]
  - Eye pain [None]
  - Migraine [None]
  - Vomiting [None]
  - Dizziness [None]
  - Epistaxis [None]
  - Dyspnoea [None]
  - Sleep disorder [None]
  - Visual impairment [None]
  - Lacrimation increased [None]

NARRATIVE: CASE EVENT DATE: 20140819
